FAERS Safety Report 24405390 (Version 1)
Quarter: 2024Q4

REPORT INFORMATION
  Report Type: Spontaneous
  Country: US (occurrence: None)
  Receive Date: 20241004
  Receipt Date: 20241004
  Transmission Date: 20250115
  Serious: Yes (Other)
  Sender: Public
  Company Number: None

PATIENT
  Age: 74 Year
  Sex: Female
  Weight: 64.35 kg

DRUGS (6)
  1. OFLOXACIN OTIC [Suspect]
     Active Substance: OFLOXACIN
     Indication: Labyrinthitis
     Dosage: OTHER STRENGTH : 3 MG/ML;?OTHER QUANTITY : 5 DROP(S);?FREQUENCY : TWICE A DAY;?
     Route: 001
     Dates: start: 20240727, end: 20240810
  2. Kirland calcium [Concomitant]
  3. a-c Carbamide [Concomitant]
  4. MOLYBDENUM [Concomitant]
     Active Substance: MOLYBDENUM
  5. KRILL OIL [Concomitant]
     Active Substance: DIETARY SUPPLEMENT\KRILL OIL
  6. HERBALS\TURMERIC [Concomitant]
     Active Substance: HERBALS\TURMERIC

REACTIONS (2)
  - Tympanic membrane perforation [None]
  - Haemorrhage [None]

NARRATIVE: CASE EVENT DATE: 20240810
